FAERS Safety Report 5505596-4 (Version None)
Quarter: 2007Q4

REPORT INFORMATION
  Report Type: 
  Country: None (occurrence: None)
  Receive Date: 20071102
  Receipt Date: 20071024
  Transmission Date: 20080405
  Serious: Yes (Hospitalization, Other)
  Sender: FDA-Public Use
  Company Number: US-PFIZER INC-2007005884

PATIENT
  Sex: Female
  Weight: 127 kg

DRUGS (6)
  1. CELEBREX [Suspect]
     Indication: BACK PAIN
  2. BEXTRA [Suspect]
     Indication: BACK PAIN
     Dates: start: 20021008
  3. VIOXX [Suspect]
     Indication: BACK PAIN
     Route: 048
  4. PLAVIX [Concomitant]
     Indication: TRANSIENT ISCHAEMIC ATTACK
     Dates: start: 20020319, end: 20040301
  5. FUROSEMIDE [Concomitant]
     Indication: FLUID RETENTION
  6. PREMARIN [Concomitant]
     Indication: HORMONE REPLACEMENT THERAPY
     Dates: start: 19990113

REACTIONS (1)
  - TRANSIENT ISCHAEMIC ATTACK [None]
